FAERS Safety Report 8558645-3 (Version None)
Quarter: 2012Q3

REPORT INFORMATION
  Report Type: 
  Country: None (occurrence: None)
  Receive Date: 20120801
  Receipt Date: 20120723
  Transmission Date: 20120928
  Serious: Yes (Hospitalization, Other)
  Sender: FDA-Public Use
  Company Number: US-009507513-1207USA010540

PATIENT

DRUGS (7)
  1. ZOCOR [Suspect]
     Dosage: 20 MG, UNK
  2. RAMIPRIL [Suspect]
     Dosage: UNK, PRN
  3. LIPITOR [Suspect]
     Dosage: 20 MG, QPM
  4. COZAAR [Concomitant]
     Dosage: 12.5 MG, UNK
  5. NEXIUM [Suspect]
     Dosage: UNK, PRN
  6. LIPITOR [Suspect]
     Dosage: 10 MG, QPM
  7. DUACT [Concomitant]

REACTIONS (26)
  - CARDIAC DISORDER [None]
  - TOXICITY TO VARIOUS AGENTS [None]
  - WHITE BLOOD CELL COUNT INCREASED [None]
  - HYPERTENSION [None]
  - C-REACTIVE PROTEIN [None]
  - HEPATIC ENZYME INCREASED [None]
  - ABDOMINAL PAIN UPPER [None]
  - THYMUS DISORDER [None]
  - SINUSITIS [None]
  - CONSTIPATION [None]
  - BLOOD CHOLESTEROL INCREASED [None]
  - RHINITIS ALLERGIC [None]
  - FATIGUE [None]
  - SYNOVIAL RUPTURE [None]
  - LYMPH NODE PAIN [None]
  - CHEST PAIN [None]
  - ABDOMINAL PAIN [None]
  - MUSCULOSKELETAL PAIN [None]
  - PNEUMONIA [None]
  - CHOLANGITIS [None]
  - VOMITING [None]
  - MUSCLE SPASMS [None]
  - HEPATIC STEATOSIS [None]
  - AMYLASE INCREASED [None]
  - DIAPHRAGMATIC DISORDER [None]
  - HEADACHE [None]
